FAERS Safety Report 19555242 (Version 1)
Quarter: 2021Q3

REPORT INFORMATION
  Report Type: Spontaneous
  Country: CN (occurrence: CN)
  Receive Date: 20210715
  Receipt Date: 20210715
  Transmission Date: 20211014
  Serious: Yes (Death, Life-Threatening, Hospitalization)
  Sender: FDA-Public Use
  Company Number: CN-STRIDES ARCOLAB LIMITED-2021SP024861

PATIENT
  Age: 65 Year
  Sex: Male

DRUGS (14)
  1. CASPOFUNGIN [Suspect]
     Active Substance: CASPOFUNGIN
     Indication: SEPSIS
     Dosage: 50 MILLIGRAM
     Route: 065
  2. CAMRELIZUMAB [Concomitant]
     Active Substance: CAMRELIZUMAB
     Indication: OESOPHAGEAL SQUAMOUS CELL CARCINOMA
     Dosage: 200 MILLIGRAM, EVERY 2 WEEKS
     Route: 065
  3. CAMRELIZUMAB [Concomitant]
     Active Substance: CAMRELIZUMAB
     Indication: METASTASES TO LYMPH NODES
  4. CEFOPERAZONE/SULBACTAM [Suspect]
     Active Substance: CEFOPERAZONE\SULBACTAM
     Indication: OPPORTUNISTIC INFECTION
     Dosage: 2 GRAM, EVERY 12 HRS
     Route: 065
  5. HUMAN?HAEMOGLOBIN [Concomitant]
     Indication: HEPATIC FAILURE
     Dosage: 1.0?1.5  GRAM PER DAY
     Route: 065
  6. CAPECITABINE. [Concomitant]
     Active Substance: CAPECITABINE
     Indication: METASTASES TO LYMPH NODES
     Dosage: UNK
     Route: 065
  7. MYCOPHENOLATE MOFETIL. [Suspect]
     Active Substance: MYCOPHENOLATE MOFETIL
     Indication: IMMUNOSUPPRESSANT DRUG THERAPY
     Dosage: UNK
     Route: 065
  8. METHYLPREDNISOLONE. [Suspect]
     Active Substance: METHYLPREDNISOLONE
     Dosage: 80 MILLIGRAM PER DAY
     Route: 065
  9. CEFOPERAZONE/SULBACTAM [Suspect]
     Active Substance: CEFOPERAZONE\SULBACTAM
     Indication: SEPSIS
  10. HUMAN SERUM ALBUMIN [Concomitant]
     Active Substance: ALBUMIN HUMAN
     Indication: HEPATIC FAILURE
     Dosage: 0.5?1.0 GRAM PER DAY
     Route: 065
  11. URSODEOXYCHOLIC [Suspect]
     Active Substance: URSODIOL
     Indication: IMMUNE-MEDIATED CHOLESTASIS
     Dosage: 25 MILLIGRAM/KILOGRAM PER DAY
     Route: 065
  12. CASPOFUNGIN [Suspect]
     Active Substance: CASPOFUNGIN
     Indication: OPPORTUNISTIC INFECTION
  13. METHYLPREDNISOLONE. [Suspect]
     Active Substance: METHYLPREDNISOLONE
     Indication: IMMUNOSUPPRESSANT DRUG THERAPY
     Dosage: 20 MILLIGRAM PER DAY
     Route: 065
  14. METHYLPREDNISOLONE. [Suspect]
     Active Substance: METHYLPREDNISOLONE
     Dosage: 40 MILLIGRAM PER DAY
     Route: 065

REACTIONS (7)
  - Sepsis [Fatal]
  - Multiple organ dysfunction syndrome [Fatal]
  - Cardiopulmonary failure [Fatal]
  - Hepatic failure [Fatal]
  - Septic shock [Fatal]
  - Drug ineffective [Unknown]
  - Opportunistic infection [Fatal]
